FAERS Safety Report 9678772 (Version 1)
Quarter: 2013Q4

REPORT INFORMATION
  Report Type: Spontaneous
  Country: DE (occurrence: DE)
  Receive Date: 20131108
  Receipt Date: 20131108
  Transmission Date: 20140711
  Serious: Yes (Hospitalization, Other)
  Sender: FDA-Public Use
  Company Number: DE-TEVA-441757GER

PATIENT
  Age: 1 Day
  Sex: Male
  Weight: 2.86 kg

DRUGS (4)
  1. LAMOTRIGINE [Suspect]
     Route: 064
  2. LEVETIRACETAM [Suspect]
     Route: 064
  3. SUFENTANIL [Concomitant]
     Route: 064
  4. ROPIVACAIN [Concomitant]
     Route: 064

REACTIONS (9)
  - Respiratory failure [Recovered/Resolved]
  - Pneumonia [Recovered/Resolved]
  - Patent ductus arteriosus [Recovered/Resolved]
  - Withdrawal syndrome [Recovered/Resolved]
  - Agitation neonatal [Recovered/Resolved]
  - Portal vein thrombosis [Recovered/Resolved]
  - Apnoea neonatal [Recovered/Resolved]
  - Feeding disorder neonatal [Recovered/Resolved]
  - Rash papular [Recovered/Resolved]
